FAERS Safety Report 17201211 (Version 1)
Quarter: 2019Q4

REPORT INFORMATION
  Report Type: Spontaneous
  Country: US (occurrence: US)
  Receive Date: 20191203
  Receipt Date: 20191203
  Transmission Date: 20200122
  Serious: Yes (Hospitalization)
  Sender: FDA-Public Use
  Company Number: None

PATIENT
  Age: 77 Year
  Sex: Male

DRUGS (2)
  1. BACLOFEN (BACLOFEN 10MG TAB , UD) [Suspect]
     Active Substance: BACLOFEN
     Indication: PAIN
     Dosage: ?          OTHER FREQUENCY:AT BEDTIME;?
     Route: 048
     Dates: start: 20161127, end: 20191017
  2. CYCLOBENZAPRINE (CYCLOBENZAPRINE HCL 10MG TAB) [Suspect]
     Active Substance: CYCLOBENZAPRINE
     Indication: PAIN
     Route: 048
     Dates: start: 20191007, end: 20191017

REACTIONS (7)
  - Acute kidney injury [None]
  - Pain [None]
  - Asthenia [None]
  - Therapy change [None]
  - Fall [None]
  - Speech disorder [None]
  - Mental status changes [None]

NARRATIVE: CASE EVENT DATE: 20191017
